FAERS Safety Report 14412602 (Version 1)
Quarter: 2018Q1

REPORT INFORMATION
  Report Type: Spontaneous
  Country: JP (occurrence: JP)
  Receive Date: 20180119
  Receipt Date: 20180119
  Transmission Date: 20180509
  Serious: Yes (Death, Hospitalization, Other)
  Sender: FDA-Public Use
  Company Number: JP-PFIZER INC-2018018756

PATIENT
  Age: 69 Year
  Sex: Male

DRUGS (3)
  1. SUTENT [Suspect]
     Active Substance: SUNITINIB MALATE
     Dosage: 25 MG, CYCLIC (2 WEEKS ON TREATMENT FOLLOWED BY 1 WEEKS OFF)
     Dates: start: 201201, end: 201206
  2. SUTENT [Suspect]
     Active Substance: SUNITINIB MALATE
     Indication: RENAL CANCER METASTATIC
     Dosage: 50 MG, CYCLIC (4 WEEKS ON TREATMENT FOLLOWED BY 2 WEEKS OFF)
     Route: 048
     Dates: start: 201109, end: 201112
  3. SUTENT [Suspect]
     Active Substance: SUNITINIB MALATE
     Dosage: 37.5 MG, CYCLIC (4 WEEKS ON TREATMENT FOLLOWED BY 2 WEEKS OFF)
     Dates: start: 201112, end: 201201

REACTIONS (7)
  - Haemorrhage subcutaneous [Unknown]
  - Death [Fatal]
  - Haematemesis [Unknown]
  - Neoplasm progression [Unknown]
  - Pharyngeal haemorrhage [Unknown]
  - Platelet count decreased [Unknown]
  - Shock haemorrhagic [Unknown]

NARRATIVE: CASE EVENT DATE: 201112
